FAERS Safety Report 11167909 (Version 3)
Quarter: 2015Q4

REPORT INFORMATION
  Report Type: Other
  Country: IT (occurrence: IT)
  Receive Date: 20150605
  Receipt Date: 20151228
  Transmission Date: 20160304
  Serious: Yes (Hospitalization)
  Sender: FDA-Public Use
  Company Number: IT-NOVEN PHARMACEUTICALS, INC.-IT2015000339

PATIENT

DRUGS (3)
  1. DAPAROX [Suspect]
     Active Substance: PAROXETINE HYDROCHLORIDE
     Indication: DRUG ABUSE
     Dosage: 5 ML, UNK
     Route: 065
     Dates: start: 20150423, end: 20150423
  2. LAMICTAL [Suspect]
     Active Substance: LAMOTRIGINE
     Indication: DRUG ABUSE
     Dosage: 700 MG, TOTAL
     Route: 048
     Dates: start: 20150423, end: 20150423
  3. PAROXETINE [Suspect]
     Active Substance: PAROXETINE\PAROXETINE HYDROCHLORIDE
     Indication: DRUG ABUSE
     Dosage: 560 MG, TOTAL
     Route: 048
     Dates: start: 20150423, end: 20150423

REACTIONS (2)
  - Drug abuse [Unknown]
  - Sopor [Unknown]

NARRATIVE: CASE EVENT DATE: 20150423
